FAERS Safety Report 19614870 (Version 1)
Quarter: 2021Q3

REPORT INFORMATION
  Report Type: Spontaneous
  Country: FR (occurrence: FR)
  Receive Date: 20210727
  Receipt Date: 20210727
  Transmission Date: 20211014
  Serious: Yes (Disabling)
  Sender: FDA-Public Use
  Company Number: FR-MYLANLABS-2021M1045036

PATIENT
  Age: 8 Month
  Sex: Female
  Weight: 8.24 kg

DRUGS (4)
  1. TEGRETOL [Suspect]
     Active Substance: CARBAMAZEPINE
     Indication: EPILEPSY
     Dosage: 120 MILLIGRAM, QD
     Route: 048
     Dates: start: 202006
  2. GARDENAL                           /00023201/ [Suspect]
     Active Substance: PHENOBARBITAL
     Indication: EPILEPSY
     Dosage: 30 MILLIGRAM, QD
     Route: 048
     Dates: start: 202005, end: 20201224
  3. VALPROIC ACID. [Suspect]
     Active Substance: VALPROIC ACID
     Indication: EPILEPSY
     Dosage: 420 MILLIGRAM, QD
     Route: 048
     Dates: start: 20201006
  4. EPITOMAX [Suspect]
     Active Substance: TOPIRAMATE
     Indication: EPILEPSY
     Dosage: 16 MILLIGRAM, QD
     Route: 048
     Dates: start: 20201224, end: 20201230

REACTIONS (1)
  - Blindness cortical [Recovering/Resolving]

NARRATIVE: CASE EVENT DATE: 20201225
